FAERS Safety Report 12054204 (Version 1)
Quarter: 2016Q1

REPORT INFORMATION
  Report Type: Spontaneous
  Country: IT (occurrence: IT)
  Receive Date: 20160209
  Receipt Date: 20160209
  Transmission Date: 20160526
  Serious: Yes (Other)
  Sender: FDA-Public Use
  Company Number: IT-TEVA-631748ACC

PATIENT
  Age: 48 Year
  Sex: Female
  Weight: 81 kg

DRUGS (2)
  1. PACLITAXEL TEVA - 6 MG/ML CONCENTRATO PER SOLUZIONE PER INFUSIONE [Suspect]
     Active Substance: PACLITAXEL
     Indication: BREAST CANCER
     Dosage: 153.6 (UNITS UNSPECIFIED)
     Route: 042
     Dates: start: 20160107, end: 20160128
  2. HERCEPTIN - 150 MG POLVERE PER CONCENTRATO PER SOLUZIONE PER INFUSIONE [Concomitant]
     Indication: BREAST CANCER
     Dosage: 648 MG
     Route: 042
     Dates: start: 20160107, end: 20160128

REACTIONS (3)
  - Oxygen saturation decreased [Recovered/Resolved]
  - Headache [Recovered/Resolved]
  - Palmar erythema [Recovered/Resolved]

NARRATIVE: CASE EVENT DATE: 20160128
